FAERS Safety Report 7658937-6 (Version None)
Quarter: 2011Q3

REPORT INFORMATION
  Report Type: 
  Country: None (occurrence: None)
  Receive Date: 20110805
  Receipt Date: 20110803
  Transmission Date: 20111222
  Serious: Yes (Life-Threatening, Hospitalization, Other)
  Sender: FDA-Public Use
  Company Number: JP-PFIZER INC-2011168790

PATIENT
  Age: 87 Year
  Sex: Male

DRUGS (9)
  1. LYRICA [Suspect]
     Indication: NEURALGIA
     Dosage: 75 MG, SINGLE
     Route: 048
     Dates: start: 20110723, end: 20110723
  2. TRICHLORMETHIAZIDE [Concomitant]
     Dosage: UNK
     Route: 048
  3. LOXOPROFEN SODIUM [Concomitant]
     Dosage: UNK
     Route: 048
  4. LANSOPRAZOLE [Concomitant]
     Dosage: UNK
     Route: 048
  5. ATELEC [Concomitant]
     Dosage: UNK
     Route: 048
  6. DIPYRIDAMOLE [Concomitant]
     Dosage: UNK
     Route: 048
  7. IRBESARTAN [Concomitant]
     Dosage: UNK
     Route: 048
  8. SENNOSIDES [Concomitant]
     Dosage: UNK
     Route: 048
  9. MUCOSTA [Concomitant]
     Dosage: UNK
     Route: 048

REACTIONS (2)
  - CEREBRAL INFARCTION [None]
  - LOSS OF CONSCIOUSNESS [None]
